FAERS Safety Report 5370389-8 (Version None)
Quarter: 2007Q2

REPORT INFORMATION
  Report Type: 
  Country: None (occurrence: None)
  Receive Date: 20070626
  Receipt Date: 20070108
  Transmission Date: 20071010
  Serious: No
  Sender: FDA-Public Use
  Company Number: US-AMGEN-US205900

PATIENT
  Sex: Male

DRUGS (2)
  1. ARANESP [Suspect]
     Indication: MYELODYSPLASTIC SYNDROME
     Route: 065
     Dates: start: 20060101
  2. HYDREA [Concomitant]
     Route: 065
     Dates: start: 20060101

REACTIONS (3)
  - FATIGUE [None]
  - GLUCOSE TOLERANCE IMPAIRED [None]
  - HYPERSOMNIA [None]
